FAERS Safety Report 20690413 (Version 1)
Quarter: 2022Q2

REPORT INFORMATION
  Report Type: Spontaneous
  Country: ES (occurrence: ES)
  Receive Date: 20220408
  Receipt Date: 20220408
  Transmission Date: 20220721
  Serious: Yes (Death)
  Sender: FDA-Public Use
  Company Number: ES-NOVARTISPH-NVSC2022ES078397

PATIENT
  Age: 77 Year
  Sex: Female
  Weight: 68 kg

DRUGS (8)
  1. LETROZOLE [Suspect]
     Active Substance: LETROZOLE
     Indication: Product used for unknown indication
     Dosage: 2.5 MG, 1X/DAY, EVERY 24 HOURS
     Route: 065
     Dates: start: 20190925
  2. HYDROCHLOROTHIAZIDE\OLMESARTAN MEDOXOMIL [Concomitant]
     Active Substance: HYDROCHLOROTHIAZIDE\OLMESARTAN MEDOXOMIL
     Indication: Hypertension
     Dosage: UNK
     Route: 048
  3. CRESTOR [Concomitant]
     Active Substance: ROSUVASTATIN CALCIUM
     Indication: Dyslipidaemia
     Dosage: UNK
     Route: 048
     Dates: start: 20101011
  4. INNOHEP [Concomitant]
     Active Substance: TINZAPARIN SODIUM
     Indication: Atrial fibrillation
     Dosage: UNK
     Route: 058
     Dates: start: 20191022
  5. BISOPROLOL [Concomitant]
     Active Substance: BISOPROLOL
     Indication: Atrial fibrillation
     Dosage: UNK
     Route: 048
     Dates: start: 20151216
  6. DIAZEPAM\SULPIRIDE [Concomitant]
     Active Substance: DIAZEPAM\SULPIRIDE
     Indication: Product used for unknown indication
     Dosage: UNK
     Route: 048
  7. AMLODIPIN ^ORIFARM^ [Concomitant]
     Indication: Hypertension
     Dosage: UNK
     Route: 048
  8. CAFINITRINA [Concomitant]
     Indication: Myocardial ischaemia
     Dosage: UNK
     Route: 060

REACTIONS (2)
  - Death [Fatal]
  - Neutrophil count decreased [Recovered/Resolved]

NARRATIVE: CASE EVENT DATE: 20191115
